APPROVED DRUG PRODUCT: PSEUDOEPHEDRINE HYDROCHLORIDE AND CHLORPHENIRAMINE MALEATE
Active Ingredient: CHLORPHENIRAMINE MALEATE; PSEUDOEPHEDRINE HYDROCHLORIDE
Strength: 12MG;120MG
Dosage Form/Route: CAPSULE, EXTENDED RELEASE;ORAL
Application: A071455 | Product #001
Applicant: KV PHARMACEUTICAL CO
Approved: Mar 1, 1989 | RLD: No | RS: No | Type: DISCN